FAERS Safety Report 9030595 (Version 1)
Quarter: 2013Q1

REPORT INFORMATION
  Report Type: Spontaneous
  Country: DE (occurrence: DE)
  Receive Date: 20130123
  Receipt Date: 20130123
  Transmission Date: 20140127
  Serious: Yes (Other)
  Sender: FDA-Public Use
  Company Number: DE-ASTRAZENECA-2013SE03065

PATIENT
  Sex: Female

DRUGS (2)
  1. SEROQUEL [Suspect]
     Indication: COMPULSIONS
     Route: 048
     Dates: end: 2012
  2. LEPONEX [Concomitant]

REACTIONS (3)
  - Eosinophil count decreased [Recovering/Resolving]
  - Basophil count decreased [Recovering/Resolving]
  - Off label use [Recovered/Resolved]
